FAERS Safety Report 13061354 (Version 1)
Quarter: 2016Q4

REPORT INFORMATION
  Report Type: Report from Study
  Country: NL (occurrence: NL)
  Receive Date: 20161226
  Receipt Date: 20161226
  Transmission Date: 20170207
  Serious: Yes (Other)
  Sender: FDA-Public Use
  Company Number: NL-AMGEN-NLDSL2016180526

PATIENT
  Age: 69 Year
  Sex: Male

DRUGS (17)
  1. PACLITAXEL. [Concomitant]
     Active Substance: PACLITAXEL
     Dosage: UNK
     Dates: start: 20160701
  2. APREPITANT. [Concomitant]
     Active Substance: APREPITANT
     Dosage: 80 MG, QD
  3. DUROGESIC [Concomitant]
     Active Substance: FENTANYL
     Dosage: 12 MUG, UNK
     Dates: start: 20161130
  4. CARBOPLATINE [Concomitant]
     Active Substance: CARBOPLATIN
     Dosage: 10 MG/ML, UNK
     Dates: start: 20160701
  5. METOCLOPRAMIDE. [Concomitant]
     Active Substance: METOCLOPRAMIDE
     Dosage: 10 MG, QD
  6. BETAHISTINE [Concomitant]
     Active Substance: BETAHISTINE
     Dosage: 16 MG, QD
     Dates: start: 20160807
  7. DEXAMETHASON [Concomitant]
     Active Substance: DEXAMETHASONE
     Dosage: 4 MG, UNK
     Dates: start: 20160928
  8. TRAMADOL + ACETAMINOFEN [Concomitant]
     Active Substance: ACETAMINOPHEN\TRAMADOL
     Dosage: 37.5/325 MG, UNK
     Dates: start: 20160712
  9. TAMSULOSINE HCL [Concomitant]
     Active Substance: TAMSULOSIN
     Dosage: 0.4 MG, QD
     Dates: start: 20160807
  10. CALCIUM/VITAMINE D3 SANDOZ [Concomitant]
     Dosage: 500MG/400IE, QD
     Dates: start: 20160807
  11. XGEVA [Suspect]
     Active Substance: DENOSUMAB
     Dosage: 70 MG/ML IN 1.70ML, UNK
     Route: 065
  12. PANTOPRAZOL SANDOZ [Concomitant]
     Dosage: 40 MG, QD
     Dates: start: 20160807
  13. XGEVA [Suspect]
     Active Substance: DENOSUMAB
     Indication: PRODUCT USED FOR UNKNOWN INDICATION
     Dosage: 120 MG, Q4WK
     Route: 058
     Dates: start: 20150909
  14. DUROGESIC [Concomitant]
     Active Substance: FENTANYL
     Dosage: 25 MUG, UNK
     Route: 065
     Dates: start: 20161207
  15. EMEND [Concomitant]
     Active Substance: APREPITANT
     Dosage: 125 MG/80 MG TWICE, UNK
     Dates: start: 20160928
  16. ONDANSETRON AUROBINDO [Concomitant]
     Active Substance: ONDANSETRON HYDROCHLORIDE
     Dosage: 8 MG, QD
     Dates: start: 20160928
  17. APREPITANT. [Concomitant]
     Active Substance: APREPITANT
     Dosage: 125 MG, QD

REACTIONS (9)
  - Rectal haemorrhage [Unknown]
  - Oesophageal carcinoma [Unknown]
  - Cholesteatoma [Unknown]
  - Constipation [Unknown]
  - Metastases to bone [Unknown]
  - Oesophageal stenosis [Unknown]
  - Hiccups [Unknown]
  - Keratoacanthoma [Unknown]
  - Abdominal distension [Unknown]

NARRATIVE: CASE EVENT DATE: 20151222
